FAERS Safety Report 7026284-1 (Version None)
Quarter: 2010Q4

REPORT INFORMATION
  Report Type: 
  Country: None (occurrence: None)
  Receive Date: 20101004
  Receipt Date: 20100921
  Transmission Date: 20110411
  Serious: Yes (Other)
  Sender: FDA-Public Use
  Company Number: AU-RANBAXY-2010RR-36736

PATIENT
  Age: 58 Year
  Sex: Female

DRUGS (2)
  1. AMLODIPINE [Suspect]
     Indication: HYPERTENSION
     Dosage: 5 MG, UNK
  2. PRAZOSIN HCL [Concomitant]
     Indication: HYPERTENSION
     Dosage: 1 MG, BID

REACTIONS (1)
  - PRIMARY HYPERALDOSTERONISM [None]
